FAERS Safety Report 22385015 (Version 1)
Quarter: 2023Q2

REPORT INFORMATION
  Report Type: Spontaneous
  Country: CN (occurrence: CN)
  Receive Date: 20230530
  Receipt Date: 20230530
  Transmission Date: 20230722
  Serious: Yes (Hospitalization, Other)
  Sender: FDA-Public Use
  Company Number: CN-PFIZER INC-PV202300093100

PATIENT
  Age: 73 Year
  Sex: Male
  Weight: 75.4 kg

DRUGS (3)
  1. AXITINIB [Suspect]
     Active Substance: AXITINIB
     Indication: Renal disorder
     Dosage: 2 MG, 2X/DAY
     Route: 048
     Dates: start: 20230313, end: 20230424
  2. AXITINIB [Suspect]
     Active Substance: AXITINIB
     Indication: Renal cancer
     Dosage: 5 MG, 1X/DAY
     Route: 048
     Dates: start: 20230424, end: 20230424
  3. AXITINIB [Suspect]
     Active Substance: AXITINIB
     Dosage: 2 MG, 1X/DAY
     Route: 048
     Dates: start: 20230424, end: 20230424

REACTIONS (4)
  - Scrotal dermatitis [Recovering/Resolving]
  - Pain of skin [Recovering/Resolving]
  - Macule [Recovering/Resolving]
  - Off label use [Unknown]

NARRATIVE: CASE EVENT DATE: 20230424
